FAERS Safety Report 4639724-X (Version None)
Quarter: 2005Q2

REPORT INFORMATION
  Report Type: 
  Country: None (occurrence: None)
  Receive Date: 20050328
  Receipt Date: 20041228
  Transmission Date: 20051028
  Serious: No
  Sender: FDA-Public Use
  Company Number: USA041287007

PATIENT
  Age: 31 Year
  Sex: Male
  Weight: 82 kg

DRUGS (1)
  1. STRATTERA [Suspect]
     Indication: ATTENTION DEFICIT/HYPERACTIVITY DISORDER
     Dosage: 40 MG DAY
     Dates: start: 20041206, end: 20041212

REACTIONS (5)
  - DYSURIA [None]
  - FEELING COLD [None]
  - POLLAKIURIA [None]
  - TESTICULAR ATROPHY [None]
  - TESTICULAR PAIN [None]
